FAERS Safety Report 6674595-1 (Version None)
Quarter: 2010Q2

REPORT INFORMATION
  Report Type: 
  Country: None (occurrence: None)
  Receive Date: 20100409
  Receipt Date: 20100401
  Transmission Date: 20101027
  Serious: Yes (Hospitalization)
  Sender: FDA-Public Use
  Company Number: JP-ROCHE-677046

PATIENT
  Sex: Female
  Weight: 55 kg

DRUGS (9)
  1. CAPECITABINE [Suspect]
     Indication: COLON CANCER
     Dosage: DRUG: XELODA 300.
     Route: 048
     Dates: start: 20090330, end: 20090412
  2. CAPECITABINE [Suspect]
     Route: 048
     Dates: start: 20090420, end: 20090503
  3. CAPECITABINE [Suspect]
     Route: 048
     Dates: start: 20090511, end: 20090524
  4. CAPECITABINE [Suspect]
     Route: 048
     Dates: start: 20090601, end: 20090614
  5. CAPECITABINE [Suspect]
     Route: 048
     Dates: start: 20090622, end: 20090705
  6. PYRIDOXAL PHOSPHATE [Concomitant]
     Dosage: DRUG: PYRIDOXAL
     Route: 048
     Dates: start: 20090330, end: 20091005
  7. MAGMITT [Concomitant]
     Route: 048
     Dates: start: 20090319
  8. JUVELA [Concomitant]
     Route: 061
     Dates: start: 20090330, end: 20090701
  9. FAMOTIDINE [Concomitant]
     Route: 048
     Dates: start: 20090413

REACTIONS (3)
  - BLOOD BILIRUBIN INCREASED [None]
  - PALMAR-PLANTAR ERYTHRODYSAESTHESIA SYNDROME [None]
  - PYELONEPHRITIS [None]
